FAERS Safety Report 5046807-1 (Version None)
Quarter: 2006Q2

REPORT INFORMATION
  Report Type: 
  Country: None (occurrence: None)
  Receive Date: 20060630
  Receipt Date: 20060621
  Transmission Date: 20061013
  Serious: Yes (Death)
  Sender: FDA-Public Use
  Company Number: 2005-128548-NL

PATIENT
  Age: 80 Year
  Sex: Female

DRUGS (9)
  1. DEXAMETHASONE TAB [Suspect]
     Dosage: 2 MG BID ORAL
     Route: 048
  2. TIOTROPIUM BROMIDE [Suspect]
     Indication: CHRONIC OBSTRUCTIVE PULMONARY DISEASE
     Dosage: 18 UG QD
  3. LACTULOSE [Suspect]
     Dosage: ORAL
     Route: 048
  4. LANSOPRAZOLE [Suspect]
     Dosage: ORAL
     Route: 048
  5. PARACETAMOL [Suspect]
     Dosage: ORAL
     Route: 048
  6. QUININE SULFATE [Suspect]
     Dosage: 300 MG QD ORAL
     Route: 048
  7. SALBUTAMOL [Suspect]
     Dosage: 2 DF Q4HR RESPIRATORY (INHALATION)
     Route: 055
  8. SENNA [Suspect]
     Dosage: ORAL
     Route: 048
  9. FLUTICASONE W/SALMETEROL [Suspect]
     Dosage: 2 DF BID RESPIRATORY (INHALATION)
     Route: 055

REACTIONS (1)
  - NON-HODGKIN'S LYMPHOMA [None]
